FAERS Safety Report 11814961 (Version 3)
Quarter: 2016Q4

REPORT INFORMATION
  Report Type: Spontaneous
  Country: US (occurrence: US)
  Receive Date: 20151209
  Receipt Date: 20161117
  Transmission Date: 20170206
  Serious: No
  Sender: FDA-Public Use
  Company Number: US-SA-2015SA195140

PATIENT
  Age: 73 Year
  Sex: Female

DRUGS (5)
  1. TOUJEO [Suspect]
     Active Substance: INSULIN GLARGINE
     Indication: TYPE 2 DIABETES MELLITUS
     Dosage: DOSE:15 UNIT(S)
     Route: 065
     Dates: start: 20151103
  2. SOLOSTAR [Concomitant]
     Active Substance: DEVICE
     Indication: TYPE 2 DIABETES MELLITUS
     Dates: start: 20151111
  3. INVOKANA [Concomitant]
     Active Substance: CANAGLIFLOZIN
  4. BABY ASPIRIN [Concomitant]
     Active Substance: ASPIRIN
     Indication: INJURY
  5. METOPROLOL. [Concomitant]
     Active Substance: METOPROLOL
     Dosage: STRENGTH: 25 MG

REACTIONS (4)
  - Blood glucose increased [Recovering/Resolving]
  - Unevaluable event [Unknown]
  - Breast pain [Unknown]
  - Inappropriate schedule of drug administration [Unknown]

NARRATIVE: CASE EVENT DATE: 201608
